FAERS Safety Report 18716589 (Version 1)
Quarter: 2021Q1

REPORT INFORMATION
  Report Type: Spontaneous
  Country: US (occurrence: US)
  Receive Date: 20210107
  Receipt Date: 20210107
  Transmission Date: 20210419
  Serious: No
  Sender: FDA-Public Use
  Company Number: None

PATIENT
  Age: 77 Year
  Sex: Male

DRUGS (1)
  1. BUDESONIDE/FORMOTEROL (BUDESONIDE) 160MCG/FORMOTEROL FUM 4.5MCG/SPRAY [Suspect]
     Active Substance: BUDESONIDE\FORMOTEROL FUMARATE
     Indication: ASTHMA
     Dosage: ?          OTHER DOSE:2 PUFFS;?
     Route: 055
     Dates: start: 20191017, end: 20200508

REACTIONS (1)
  - Breast engorgement [None]

NARRATIVE: CASE EVENT DATE: 20200508
